FAERS Safety Report 19752395 (Version 1)
Quarter: 2021Q3

REPORT INFORMATION
  Report Type: Spontaneous
  Country: US (occurrence: US)
  Receive Date: 20210827
  Receipt Date: 20210827
  Transmission Date: 20211014
  Serious: No
  Sender: FDA-Public Use
  Company Number: US-ORGANON-O2108USA001643

PATIENT
  Age: 20 Year
  Sex: Male

DRUGS (3)
  1. DIPROLENE [Suspect]
     Active Substance: BETAMETHASONE DIPROPIONATE
     Indication: MELANOCYTIC NAEVUS
  2. DIPROLENE [Suspect]
     Active Substance: BETAMETHASONE DIPROPIONATE
     Indication: VITILIGO
  3. DIPROLENE [Suspect]
     Active Substance: BETAMETHASONE DIPROPIONATE
     Indication: HAIR COLOUR CHANGES
     Dosage: UNK UNK, BID

REACTIONS (1)
  - Product use in unapproved indication [Unknown]
